FAERS Safety Report 5914272-5 (Version None)
Quarter: 2008Q4

REPORT INFORMATION
  Report Type: 
  Country: None (occurrence: None)
  Receive Date: 20081009
  Receipt Date: 20080926
  Transmission Date: 20090506
  Serious: Yes (Death, Life-Threatening, Hospitalization, Disabling, Other)
  Sender: FDA-Public Use
  Company Number: FR-AMGEN-UK272141

PATIENT
  Sex: Male
  Weight: 89 kg

DRUGS (6)
  1. NEULASTA [Suspect]
     Indication: CHEMOTHERAPY
     Route: 058
     Dates: start: 20080317, end: 20080317
  2. VIDAZA [Concomitant]
     Dates: start: 20080310
  3. ACEBUTOLOL [Concomitant]
     Route: 048
     Dates: start: 19981001
  4. DILTIAZEM HCL [Concomitant]
     Route: 065
     Dates: start: 19981001
  5. KARDEGIC [Concomitant]
     Route: 065
     Dates: start: 19981001
  6. FLUVASTATIN [Concomitant]
     Route: 065
     Dates: start: 20050101

REACTIONS (6)
  - ACUTE RESPIRATORY DISTRESS SYNDROME [None]
  - LEUKOCYTOSIS [None]
  - LEUKOSTASIS [None]
  - PYREXIA [None]
  - RESPIRATORY FAILURE [None]
  - SEPSIS [None]
